FAERS Safety Report 6808079-4 (Version None)
Quarter: 2010Q2

REPORT INFORMATION
  Report Type: 
  Country: None (occurrence: None)
  Receive Date: 20100629
  Receipt Date: 20090331
  Transmission Date: 20101027
  Serious: No
  Sender: FDA-Public Use
  Company Number: US-PFIZER INC-2009166558

PATIENT
  Sex: Female

DRUGS (3)
  1. XANAX [Suspect]
     Dosage: 0.5 MG, 2X/DAY
  2. DIFLUCAN [Suspect]
     Dosage: UNK
  3. CEFDINIR [Concomitant]

REACTIONS (2)
  - DIARRHOEA [None]
  - SINUSITIS [None]
